FAERS Safety Report 7280716-2 (Version None)
Quarter: 2011Q1

REPORT INFORMATION
  Report Type: 
  Country: None (occurrence: None)
  Receive Date: 20110208
  Receipt Date: 20110201
  Transmission Date: 20110831
  Serious: Yes (Other)
  Sender: FDA-Public Use
  Company Number: B0697861A

PATIENT
  Age: 49 Year
  Sex: Female

DRUGS (2)
  1. XELODA [Concomitant]
     Dosage: 2000MG PER DAY
     Route: 048
     Dates: start: 20100610
  2. TYKERB [Suspect]
     Indication: BREAST CANCER
     Dosage: 1250MG PER DAY
     Route: 048
     Dates: start: 20100610

REACTIONS (1)
  - JAUNDICE [None]
